FAERS Safety Report 8064344-7 (Version None)
Quarter: 2012Q1

REPORT INFORMATION
  Report Type: 
  Country: None (occurrence: None)
  Receive Date: 20120123
  Receipt Date: 20120116
  Transmission Date: 20120608
  Serious: Yes (Other)
  Sender: FDA-Public Use
  Company Number: GB-PFIZER INC-2012012483

PATIENT
  Sex: Female

DRUGS (3)
  1. ONDANSETRON HCL [Suspect]
     Indication: PROPHYLAXIS OF NAUSEA AND VOMITING
  2. TRASTUZUMAB [Suspect]
     Indication: BREAST CANCER
  3. VINORELBINE [Suspect]
     Indication: BREAST CANCER
     Route: 042

REACTIONS (1)
  - CONSTIPATION [None]
